FAERS Safety Report 17683593 (Version 1)
Quarter: 2020Q2

REPORT INFORMATION
  Report Type: Spontaneous
  Country: US (occurrence: US)
  Receive Date: 20200420
  Receipt Date: 20200420
  Transmission Date: 20200714
  Serious: No
  Sender: FDA-Public Use
  Company Number: US-AUROBINDO-AUR-APL-2020-007051

PATIENT
  Age: 14 Year
  Sex: Female
  Weight: 71 kg

DRUGS (1)
  1. AZITHROMYCIN 250 MG TABLETS USP [Suspect]
     Active Substance: AZITHROMYCIN
     Indication: BACTERIAL INFECTION
     Dosage: 2 TABLETS FOR FIRST  DAY AND 1 TABLET FOR NEXT FOUR DAYS
     Route: 065
     Dates: start: 20200127, end: 20200201

REACTIONS (1)
  - Rash erythematous [Not Recovered/Not Resolved]

NARRATIVE: CASE EVENT DATE: 20200201
